FAERS Safety Report 12527663 (Version 3)
Quarter: 2016Q4

REPORT INFORMATION
  Report Type: Report from Study
  Country: JP (occurrence: JP)
  Receive Date: 20160705
  Receipt Date: 20161115
  Transmission Date: 20170207
  Serious: Yes (Death)
  Sender: FDA-Public Use
  Company Number: JP-EISAI MEDICAL RESEARCH-EC-2016-018141

PATIENT
  Age: 72 Year
  Sex: Female
  Weight: 49 kg

DRUGS (14)
  1. HALAVEN [Suspect]
     Active Substance: ERIBULIN MESYLATE
     Route: 041
     Dates: start: 20150525, end: 20150615
  2. URSO [Concomitant]
     Active Substance: URSODIOL
  3. FAROM [Concomitant]
     Active Substance: FAROPENEM SODIUM
  4. VOLTAREN [Concomitant]
     Active Substance: DICLOFENAC SODIUM
  5. AVASTIN [Concomitant]
     Active Substance: BEVACIZUMAB
     Indication: PRODUCT USED FOR UNKNOWN INDICATION
     Dosage: UNKNOWN DOSE
     Route: 065
     Dates: start: 201405, end: 201501
  6. TSUMURA JUZENTAIHOTO EXTRACT GRANULES FOR ETHICAL USE [Concomitant]
  7. BIOFERMIN R [Concomitant]
     Active Substance: BACILLUS SUBTILIS\LACTOBACILLUS ACIDOPHILUS\STREPTOCOCCUS FAECAIS
  8. HALAVEN [Suspect]
     Active Substance: ERIBULIN MESYLATE
     Indication: BREAST CANCER RECURRENT
     Route: 041
     Dates: start: 20150202, end: 20150202
  9. ZOMETA [Concomitant]
     Active Substance: ZOLEDRONIC ACID
  10. HALAVEN [Suspect]
     Active Substance: ERIBULIN MESYLATE
     Route: 041
     Dates: start: 20150216, end: 20150511
  11. PACLITAXEL. [Concomitant]
     Active Substance: PACLITAXEL
     Indication: PRODUCT USED FOR UNKNOWN INDICATION
     Dosage: UNKNOWN DOSE
     Route: 065
     Dates: start: 201405, end: 201501
  12. CALONAL [Concomitant]
     Active Substance: ACETAMINOPHEN
  13. MUCOSTA [Concomitant]
     Active Substance: REBAMIPIDE
  14. LOXONIN [Concomitant]
     Active Substance: LOXOPROFEN SODIUM

REACTIONS (1)
  - Metastases to liver [Fatal]
